FAERS Safety Report 20723786 (Version 1)
Quarter: 2022Q2

REPORT INFORMATION
  Report Type: Spontaneous
  Country: AU (occurrence: AU)
  Receive Date: 20220419
  Receipt Date: 20220419
  Transmission Date: 20220721
  Serious: Yes (Death, Other)
  Sender: FDA-Public Use
  Company Number: AU-SUN PHARMACEUTICAL INDUSTRIES LTD-2022R1-333351

PATIENT
  Age: 84 Year
  Sex: Female

DRUGS (1)
  1. DEXAMETHASONE [Suspect]
     Active Substance: DEXAMETHASONE
     Indication: Neuroendocrine carcinoma of the skin
     Dosage: 8 MILLIGRAM, DAILY
     Route: 065

REACTIONS (3)
  - Herpes simplex oesophagitis [Fatal]
  - Herpes simplex reactivation [Unknown]
  - Odynophagia [Recovering/Resolving]
